FAERS Safety Report 19990077 (Version 3)
Quarter: 2022Q1

REPORT INFORMATION
  Report Type: Spontaneous
  Country: US (occurrence: US)
  Receive Date: 20211025
  Receipt Date: 20220120
  Transmission Date: 20220423
  Serious: No
  Sender: FDA-Public Use
  Company Number: US-BEH-2021137329

PATIENT
  Age: 74 Year
  Sex: Male
  Weight: 77.6 kg

DRUGS (15)
  1. PRIVIGEN [Suspect]
     Active Substance: HUMAN IMMUNOGLOBULIN G
     Indication: Immune thrombocytopenia
     Dosage: 77 GRAM, QMT
     Route: 042
     Dates: start: 20211014, end: 20211014
  2. PRIVIGEN [Suspect]
     Active Substance: HUMAN IMMUNOGLOBULIN G
     Indication: Hypogammaglobulinaemia
     Dosage: 70 GRAM
     Route: 065
     Dates: start: 20210624
  3. PRIVIGEN [Suspect]
     Active Substance: HUMAN IMMUNOGLOBULIN G
     Dosage: 70 GRAM
     Route: 065
     Dates: start: 20210722
  4. PRIVIGEN [Suspect]
     Active Substance: HUMAN IMMUNOGLOBULIN G
     Dosage: 70 GRAM
     Route: 065
     Dates: start: 20210819
  5. PRIVIGEN [Suspect]
     Active Substance: HUMAN IMMUNOGLOBULIN G
     Dosage: 70 GRAM
     Route: 065
     Dates: start: 20210916
  6. PRIVIGEN [Suspect]
     Active Substance: HUMAN IMMUNOGLOBULIN G
     Dosage: 77 GRAM, QMT
     Route: 042
     Dates: start: 20211014, end: 20211014
  7. PRIVIGEN [Suspect]
     Active Substance: HUMAN IMMUNOGLOBULIN G
     Dosage: 77 GRAM, QMT
     Route: 042
     Dates: start: 20211014, end: 20211014
  8. ALBUTEROL [Concomitant]
     Active Substance: ALBUTEROL
  9. TIMOPTIC [Concomitant]
     Active Substance: TIMOLOL MALEATE
  10. ALLOPURINOL [Concomitant]
     Active Substance: ALLOPURINOL
  11. EZETIMIBE [Concomitant]
     Active Substance: EZETIMIBE
  12. FISH OIL [Concomitant]
     Active Substance: FISH OIL
  13. ADVAIR HFA [Concomitant]
     Active Substance: FLUTICASONE PROPIONATE\SALMETEROL XINAFOATE
  14. LOSARTAN [Concomitant]
     Active Substance: LOSARTAN
  15. TERBINAFINE [Concomitant]
     Active Substance: TERBINAFINE

REACTIONS (5)
  - Hypersensitivity [Recovered/Resolved]
  - Recalled product administered [Recovered/Resolved]
  - Urticaria [Recovered/Resolved]
  - Pruritus [Recovered/Resolved]
  - Recalled product administered [Recovered/Resolved]

NARRATIVE: CASE EVENT DATE: 20211014
